FAERS Safety Report 10094945 (Version 1)
Quarter: 2014Q2

REPORT INFORMATION
  Report Type: Spontaneous
  Country: US (occurrence: None)
  Receive Date: 20140421
  Receipt Date: 20140421
  Transmission Date: 20141212
  Serious: Yes (Hospitalization)
  Sender: FDA-Public Use
  Company Number: None

PATIENT
  Age: 72 Year
  Sex: Male
  Weight: 84.7 kg

DRUGS (2)
  1. TAMSULOSIN [Suspect]
     Indication: NOCTURIA
     Route: 048
     Dates: start: 20140210, end: 20140212
  2. LISINOPRIL [Suspect]
     Indication: HYPERTENSION
     Route: 048
     Dates: start: 20120809, end: 20140212

REACTIONS (1)
  - Lip swelling [None]
